FAERS Safety Report 9370756 (Version 1)
Quarter: 2013Q2

REPORT INFORMATION
  Report Type: Spontaneous
  Country: MX (occurrence: MX)
  Receive Date: 20130626
  Receipt Date: 20130626
  Transmission Date: 20140414
  Serious: Yes (Hospitalization)
  Sender: FDA-Public Use
  Company Number: MX-B.I. PHARMACEUTICALS,INC./RIDGEFIELD-2013-MX-00213MX

PATIENT
  Age: 70 Year
  Sex: Female
  Weight: 68 kg

DRUGS (3)
  1. PRADAXAR [Suspect]
     Indication: ARRHYTHMIA PROPHYLAXIS
     Dosage: 150 MG
     Route: 048
     Dates: start: 20130524, end: 20130613
  2. PROPAFENONE [Concomitant]
     Indication: ATRIAL FIBRILLATION
     Dosage: 1 TAB EACH 8 HOURS
     Route: 048
     Dates: start: 2013
  3. EXFORGE [Concomitant]
     Indication: HYPERTENSION
     Route: 048

REACTIONS (2)
  - Ischaemic stroke [Not Recovered/Not Resolved]
  - Cerebral infarction [Not Recovered/Not Resolved]
